FAERS Safety Report 10552544 (Version 2)
Quarter: 2014Q4

REPORT INFORMATION
  Report Type: Spontaneous
  Country: TW (occurrence: TW)
  Receive Date: 20141029
  Receipt Date: 20141118
  Transmission Date: 20150529
  Serious: Yes (Hospitalization)
  Sender: FDA-Public Use
  Company Number: TW-CELGENE-TWN-2014104888

PATIENT
  Age: 64 Year
  Sex: Male

DRUGS (1)
  1. AZACITIDINE. [Suspect]
     Active Substance: AZACITIDINE
     Indication: MYELODYSPLASTIC SYNDROME
     Route: 058

REACTIONS (3)
  - Nausea [Recovered/Resolved]
  - Mouth ulceration [Recovered/Resolved]
  - Necrotising fasciitis [Recovered/Resolved]
